APPROVED DRUG PRODUCT: PREDNISONE
Active Ingredient: PREDNISONE
Strength: 20MG
Dosage Form/Route: TABLET;ORAL
Application: A089389 | Product #001
Applicant: AMERICAN THERAPEUTICS INC
Approved: Nov 6, 1986 | RLD: No | RS: No | Type: DISCN